FAERS Safety Report 4873299-5 (Version None)
Quarter: 2005Q4

REPORT INFORMATION
  Report Type: 
  Country: None (occurrence: None)
  Receive Date: 20051201
  Receipt Date: 20050803
  Transmission Date: 20060501
  Serious: No
  Sender: FDA-Public Use
  Company Number: 2005PV000892

PATIENT
  Age: 56 Year
  Sex: Female
  Weight: 89.8122 kg

DRUGS (12)
  1. BYETTA [Suspect]
     Indication: DIABETES MELLITUS NON-INSULIN-DEPENDENT
     Dosage: SEE IMAGE
     Route: 058
     Dates: start: 20050101
  2. BYETTA [Suspect]
     Indication: DIABETES MELLITUS NON-INSULIN-DEPENDENT
     Dosage: SEE IMAGE
     Route: 058
     Dates: start: 20050613
  3. LANTUS [Concomitant]
  4. GLUCOPHAGE XR [Concomitant]
  5. ACTOS [Concomitant]
  6. ZOCOR [Concomitant]
  7. NEXIUM [Concomitant]
  8. CYMBALTA [Concomitant]
  9. WELLBUTRIN [Concomitant]
  10. ASPIRIN [Concomitant]
  11. CENTRUM SILVER [Concomitant]
  12. IRON [Concomitant]

REACTIONS (5)
  - DECREASED APPETITE [None]
  - EARLY SATIETY [None]
  - NAUSEA [None]
  - VOMITING [None]
  - WEIGHT DECREASED [None]
